FAERS Safety Report 4974803-9 (Version None)
Quarter: 2006Q1

REPORT INFORMATION
  Report Type: 
  Country: None (occurrence: None)
  Receive Date: 20060216
  Receipt Date: 20051104
  Transmission Date: 20060701
  Serious: Yes (Hospitalization)
  Sender: FDA-Public Use
  Company Number: 2005069274

PATIENT
  Sex: Female

DRUGS (1)
  1. MYCOBUTIN [Suspect]
     Indication: ILL-DEFINED DISORDER
     Dosage: 150 MG

REACTIONS (3)
  - PAIN [None]
  - PYREXIA [None]
  - WHITE BLOOD CELL COUNT DECREASED [None]
